FAERS Safety Report 11759814 (Version 4)
Quarter: 2016Q1

REPORT INFORMATION
  Report Type: Spontaneous
  Country: US (occurrence: US)
  Receive Date: 20151120
  Receipt Date: 20160114
  Transmission Date: 20160525
  Serious: Yes (Hospitalization, Other)
  Sender: FDA-Public Use
  Company Number: US-PFIZER INC-2015390996

PATIENT
  Age: 74 Year
  Sex: Male
  Weight: 122 kg

DRUGS (6)
  1. CLAVIX /01220707/ [Suspect]
     Active Substance: CLOPIDOGREL BISULFATE
     Indication: ANTICOAGULANT THERAPY
     Dosage: UNK
  2. LIPITOR [Suspect]
     Active Substance: ATORVASTATIN CALCIUM
     Indication: CARDIOVASCULAR DISORDER
     Dosage: 25 MG, 1X/DAY
     Route: 048
     Dates: end: 20151109
  3. PLAVIX [Suspect]
     Active Substance: CLOPIDOGREL BISULFATE
     Indication: CARDIOVASCULAR DISORDER
     Dosage: 75 MG, 1X/DAY
  4. TRADJENTA [Concomitant]
     Active Substance: LINAGLIPTIN
     Indication: DIABETES MELLITUS
     Dosage: 5 MG, 1X/DAY
  5. ATENOLOL. [Suspect]
     Active Substance: ATENOLOL
     Indication: BLOOD CHOLESTEROL INCREASED
     Dosage: 50 MG, 1X/DAY
  6. TRADJENTA [Concomitant]
     Active Substance: LINAGLIPTIN
     Dosage: UNK

REACTIONS (9)
  - Tinnitus [Not Recovered/Not Resolved]
  - Blindness unilateral [Not Recovered/Not Resolved]
  - Insomnia [Unknown]
  - Retinal haemorrhage [Not Recovered/Not Resolved]
  - Arthritis [Unknown]
  - Neovascular age-related macular degeneration [Not Recovered/Not Resolved]
  - Macular degeneration [Not Recovered/Not Resolved]
  - Pain [Recovered/Resolved]
  - Headache [Unknown]
